FAERS Safety Report 7476929-7 (Version None)
Quarter: 2011Q2

REPORT INFORMATION
  Report Type: 
  Country: None (occurrence: None)
  Receive Date: 20110512
  Receipt Date: 20110429
  Transmission Date: 20111010
  Serious: Yes (Hospitalization, Other)
  Sender: FDA-Public Use
  Company Number: US-BAYER-2011-038315

PATIENT
  Age: 69 Year
  Sex: Male

DRUGS (3)
  1. ALEVE (CAPLET) [Suspect]
     Indication: ANALGESIC THERAPY
  2. HUMIRA [Suspect]
     Dosage: 40 MG / 0.8 ML PEN
     Dates: start: 20090101
  3. HYDROCODONE BITARTRATE [Concomitant]
     Dosage: UNK UNK, PRN

REACTIONS (8)
  - LOSS OF CONSCIOUSNESS [None]
  - FAECES DISCOLOURED [None]
  - PNEUMONIA [None]
  - ULCER HAEMORRHAGE [None]
  - MUSCLE STRAIN [None]
  - DEHYDRATION [None]
  - CHEST PAIN [None]
  - BLADDER NEOPLASM [None]
